FAERS Safety Report 7048001-1 (Version None)
Quarter: 2010Q4

REPORT INFORMATION
  Report Type: 
  Country: None (occurrence: None)
  Receive Date: 20101015
  Receipt Date: 20101008
  Transmission Date: 20110411
  Serious: Yes (Other)
  Sender: FDA-Public Use
  Company Number: A0885644A

PATIENT
  Age: 43 Year
  Sex: Female

DRUGS (2)
  1. LAMICTAL [Suspect]
     Indication: EPILEPSY
     Dosage: 200MG PER DAY
     Route: 048
     Dates: start: 20090401
  2. MULTI-VITAMIN [Concomitant]

REACTIONS (5)
  - CONTUSION [None]
  - DRUG INEFFECTIVE [None]
  - GRAND MAL CONVULSION [None]
  - HEAD INJURY [None]
  - PERIORBITAL HAEMATOMA [None]
